FAERS Safety Report 7913319-4 (Version None)
Quarter: 2011Q4

REPORT INFORMATION
  Report Type: 
  Country: None (occurrence: None)
  Receive Date: 20111114
  Receipt Date: 20111104
  Transmission Date: 20120403
  Serious: Yes (Hospitalization)
  Sender: FDA-Public Use
  Company Number: US-ASTRAZENECA-2011SE57669

PATIENT
  Age: 65 Year
  Sex: Male
  Weight: 86.2 kg

DRUGS (9)
  1. ATENOLOL [Concomitant]
     Indication: CARDIAC DISORDER
     Route: 048
  2. ASPIRIN [Concomitant]
     Indication: CARDIAC DISORDER
  3. DIOVAN [Concomitant]
     Indication: CARDIAC DISORDER
  4. SEROQUEL [Interacting]
     Indication: SLEEP DISORDER
     Route: 048
  5. SEROQUEL [Suspect]
     Indication: DEPRESSION
     Route: 048
  6. SEROQUEL [Interacting]
     Indication: POST-TRAUMATIC STRESS DISORDER
     Route: 048
  7. UNSPECIFIED [Interacting]
     Route: 065
  8. PLAVIX [Concomitant]
     Indication: CARDIAC DISORDER
  9. ZOCOR [Concomitant]
     Indication: CARDIAC DISORDER

REACTIONS (11)
  - DRUG DOSE OMISSION [None]
  - GAIT DISTURBANCE [None]
  - HYPOTENSION [None]
  - MANIA [None]
  - INSOMNIA [None]
  - DRUG WITHDRAWAL SYNDROME [None]
  - DRUG PRESCRIBING ERROR [None]
  - OXYGEN SATURATION DECREASED [None]
  - DEPRESSION [None]
  - OFF LABEL USE [None]
  - DRUG INTERACTION [None]
